FAERS Safety Report 17706080 (Version 4)
Quarter: 2023Q4

REPORT INFORMATION
  Report Type: Report from Study
  Country: DE (occurrence: DE)
  Receive Date: 20200424
  Receipt Date: 20231011
  Transmission Date: 20240110
  Serious: Yes (Hospitalization)
  Sender: FDA-Public Use
  Company Number: DE-JNJFOC-20200236262

PATIENT
  Age: 73 Year
  Sex: Female
  Weight: 99 kg

DRUGS (23)
  1. SIMPONI [Suspect]
     Active Substance: GOLIMUMAB
     Indication: Colitis ulcerative
     Route: 058
     Dates: start: 20170329, end: 20190504
  2. SIMPONI [Suspect]
     Active Substance: GOLIMUMAB
     Route: 058
     Dates: start: 20191005, end: 20200126
  3. BREO ELLIPTA [Concomitant]
     Active Substance: FLUTICASONE FUROATE\VILANTEROL TRIFENATATE
     Indication: Asthma
     Dates: start: 2000
  4. AZOPT [Concomitant]
     Active Substance: BRINZOLAMIDE
     Indication: Glaucoma
     Dates: start: 2000
  5. XALATAN [Concomitant]
     Active Substance: LATANOPROST
     Indication: Glaucoma
     Dates: start: 2000
  6. URAPIDIL [Concomitant]
     Active Substance: URAPIDIL
     Indication: Hypertension
     Dates: start: 20180517
  7. LEVOTHYROXINE SODIUM [Concomitant]
     Active Substance: LEVOTHYROXINE SODIUM
     Indication: Hypothyroidism
     Dates: start: 20181017, end: 20190108
  8. LEVOTHYROXINE SODIUM [Concomitant]
     Active Substance: LEVOTHYROXINE SODIUM
     Dates: start: 20190108
  9. PYLERA [Concomitant]
     Active Substance: BISMUTH SUBCITRATE POTASSIUM\METRONIDAZOLE\TETRACYCLINE HYDROCHLORIDE
     Indication: Gastritis
     Dates: start: 20191116, end: 20191201
  10. TISOPURINE [Concomitant]
     Active Substance: TISOPURINE
  11. BREO ELLIPTA [Concomitant]
     Active Substance: FLUTICASONE FUROATE\VILANTEROL TRIFENATATE
     Indication: Asthma
     Dates: start: 2000
  12. MEROPENEM [Concomitant]
     Active Substance: MEROPENEM
     Indication: Peritoneal tuberculosis
     Dates: start: 20200221, end: 20200223
  13. ISONIAZID [Concomitant]
     Active Substance: ISONIAZID
     Indication: Peritoneal tuberculosis
     Dates: start: 20200306
  14. RIFAMPIN [Concomitant]
     Active Substance: RIFAMPIN
     Indication: Peritoneal tuberculosis
     Dates: start: 20200308
  15. PYRAZINAMIDE [Concomitant]
     Active Substance: PYRAZINAMIDE
     Indication: Peritoneal tuberculosis
     Dates: start: 20200310
  16. ETHAMBUTOL [Concomitant]
     Active Substance: ETHAMBUTOL HYDROCHLORIDE
     Indication: Peritoneal tuberculosis
     Dates: start: 20200312
  17. VITAMIN B DUO [Concomitant]
     Indication: Peritoneal tuberculosis
     Dates: start: 20200308
  18. ALLOPURINOL [Concomitant]
     Active Substance: ALLOPURINOL
     Indication: Peritoneal tuberculosis
     Dates: start: 20200308
  19. PREDNISOLONE [Concomitant]
     Active Substance: PREDNISOLONE
     Indication: Systemic inflammatory response syndrome
     Dates: start: 202004, end: 20211101
  20. PURINETHOL [Concomitant]
     Active Substance: MERCAPTOPURINE
  21. MESALAMINE [Concomitant]
     Active Substance: MESALAMINE
     Dates: start: 20210915
  22. HYDROCORTISONE [Concomitant]
     Active Substance: HYDROCORTISONE
     Dates: start: 202111
  23. HYDROCORTISONE [Concomitant]
     Active Substance: HYDROCORTISONE
     Dates: start: 202211

REACTIONS (1)
  - Peritoneal tuberculosis [Recovered/Resolved]

NARRATIVE: CASE EVENT DATE: 20200110
